FAERS Safety Report 13312099 (Version 1)
Quarter: 2017Q1

REPORT INFORMATION
  Report Type: Spontaneous
  Country: US (occurrence: US)
  Receive Date: 20170309
  Receipt Date: 20170309
  Transmission Date: 20170428
  Serious: No
  Sender: FDA-Public Use
  Company Number: US-009507513-1703USA003125

PATIENT
  Age: 21 Year
  Sex: Female
  Weight: 81.63 kg

DRUGS (1)
  1. NUVARING [Suspect]
     Active Substance: ETHINYL ESTRADIOL\ETONOGESTREL
     Indication: CONTRACEPTION
     Dosage: 1 RING, QM (REPORTED AS ^3 WEEKS INSIDE THEN 1 WEEK BREAK^)
     Route: 067
     Dates: end: 20170302

REACTIONS (2)
  - Vaginal discharge [Unknown]
  - Device breakage [Unknown]

NARRATIVE: CASE EVENT DATE: 20170306
